FAERS Safety Report 5562911-3 (Version None)
Quarter: 2007Q4

REPORT INFORMATION
  Report Type: 
  Country: None (occurrence: None)
  Receive Date: 20071217
  Receipt Date: 20071203
  Transmission Date: 20080405
  Serious: Yes (Death)
  Sender: FDA-Public Use
  Company Number: GB-AMGEN-US209049

PATIENT
  Sex: Female
  Weight: 95 kg

DRUGS (2)
  1. ENBREL [Suspect]
     Indication: PSORIASIS
     Route: 058
     Dates: start: 20060301, end: 20061001
  2. ENBREL [Suspect]
     Indication: DERMATITIS EXFOLIATIVE

REACTIONS (6)
  - ARRHYTHMIA [None]
  - CARDIAC FAILURE [None]
  - HYPERTENSION [None]
  - HYPERTENSIVE CARDIOMEGALY [None]
  - RASH [None]
  - URINARY TRACT INFECTION [None]
